FAERS Safety Report 7605833 (Version 3)
Quarter: 2019Q1

REPORT INFORMATION
  Report Type: Spontaneous
  Country: IT (occurrence: IT)
  Receive Date: 20100924
  Receipt Date: 20190128
  Transmission Date: 20190418
  Serious: Yes (Hospitalization, Other)
  Sender: FDA-Public Use
  Company Number: IT-SANOFI-AVENTIS-2010SA056981

PATIENT
  Age: 66 Year
  Sex: Male

DRUGS (3)
  1. 5-FLUOROURACIL [FLUOROURACIL] [Concomitant]
     Active Substance: FLUOROURACIL
     Indication: ADENOCARCINOMA OF COLON
     Dosage: UNK
  2. OXALIPLATIN. [Suspect]
     Active Substance: OXALIPLATIN
     Indication: ADENOCARCINOMA OF COLON
     Dosage: 140 MG/M2 EVERY 21 DAYS
     Route: 041
  3. OXALIPLATIN. [Suspect]
     Active Substance: OXALIPLATIN
     Indication: CHEMOTHERAPY
     Dosage: CUMULATIVE DOSE OF OXALIPLATIN 980 MG

REACTIONS (9)
  - Renal tubular acidosis [Unknown]
  - Acidosis hyperchloraemic [Unknown]
  - Lethargy [Unknown]
  - Headache [Unknown]
  - Hypokalaemia [Unknown]
  - Mental status changes [Unknown]
  - Dehydration [Unknown]
  - Anxiety [Unknown]
  - Pyrexia [Unknown]
